FAERS Safety Report 10028504 (Version 1)
Quarter: 2014Q1

REPORT INFORMATION
  Report Type: Spontaneous
  Country: BR (occurrence: BR)
  Receive Date: 20140321
  Receipt Date: 20140321
  Transmission Date: 20141002
  Serious: Yes (Other)
  Sender: FDA-Public Use
  Company Number: BR-ELI_LILLY_AND_COMPANY-BR201403003305

PATIENT
  Age: 74 Year
  Sex: Female
  Weight: 57 kg

DRUGS (8)
  1. HUMALOG [Suspect]
     Indication: BLOOD GLUCOSE ABNORMAL
     Dosage: 4 IU, PRN
     Route: 058
  2. IBUPROFENO [Suspect]
     Indication: PULMONARY FIBROSIS
     Dosage: 400 MG, UNKNOWN
  3. IBUPROFENO [Suspect]
     Dosage: 6 DF, UNKNOWN
     Route: 065
  4. INSULINE NPH [Concomitant]
     Indication: PRODUCT USED FOR UNKNOWN INDICATION
     Dosage: 30 IU, EACH MORNING
     Route: 065
  5. PURAN T4 [Concomitant]
     Indication: THYROID DISORDER
     Dosage: UNK, UNKNOWN
     Route: 065
  6. OMEPRAZOL                          /00661201/ [Concomitant]
     Indication: GASTRIC DISORDER
     Dosage: 20 MG, UNKNOWN
     Route: 065
  7. LOSARTAN [Concomitant]
     Indication: BLOOD PRESSURE
     Dosage: 100 MG, UNKNOWN
     Route: 065
  8. MILGAMMA                           /00089801/ [Concomitant]
     Indication: NEUROPATHY PERIPHERAL
     Dosage: UNK, UNKNOWN
     Route: 065

REACTIONS (5)
  - Pulmonary fibrosis [Unknown]
  - Drug ineffective [Recovered/Resolved]
  - Blood glucose increased [Recovered/Resolved]
  - Malaise [Unknown]
  - Hypoglycaemia [Unknown]
